FAERS Safety Report 14172568 (Version 1)
Quarter: 2017Q4

REPORT INFORMATION
  Report Type: Report from Study
  Country: None (occurrence: US)
  Receive Date: 20171109
  Receipt Date: 20171109
  Transmission Date: 20180321
  Serious: Yes (Other)
  Sender: FDA-Public Use
  Company Number: US-ABBVIE-17K-163-1918027-00

PATIENT
  Age: 40 Year
  Sex: Female

DRUGS (1)
  1. HUMIRA [Suspect]
     Active Substance: ADALIMUMAB
     Indication: ANKYLOSING SPONDYLITIS
     Route: 058

REACTIONS (7)
  - Anaemia postoperative [Unknown]
  - Gastrointestinal disorder postoperative [Unknown]
  - Pharyngitis [Recovering/Resolving]
  - Flatulence [Unknown]
  - Stomatitis [Recovering/Resolving]
  - Anaemia [Recovering/Resolving]
  - Gastric banding [Unknown]

NARRATIVE: CASE EVENT DATE: 201612
